FAERS Safety Report 7322658-X (Version None)
Quarter: 2011Q1

REPORT INFORMATION
  Report Type: 
  Country: None (occurrence: None)
  Receive Date: 20110301
  Receipt Date: 20110225
  Transmission Date: 20110831
  Serious: No
  Sender: FDA-Public Use
  Company Number: US-PFIZER INC-2011041998

PATIENT
  Sex: Female
  Weight: 56.768 kg

DRUGS (3)
  1. PRISTIQ [Suspect]
     Indication: STRESS
  2. PRISTIQ [Suspect]
     Indication: NECK PAIN
     Dosage: 50 MG, 1X/DAY
     Route: 048
     Dates: start: 20101203
  3. BENICAR [Concomitant]
     Indication: HYPERTENSION
     Dosage: UNK

REACTIONS (2)
  - ALOPECIA [None]
  - DRUG INEFFECTIVE [None]
